FAERS Safety Report 6150303-8 (Version None)
Quarter: 2009Q2

REPORT INFORMATION
  Report Type: 
  Country: None (occurrence: None)
  Receive Date: 20090407
  Receipt Date: 20090323
  Transmission Date: 20091009
  Serious: Yes (Hospitalization)
  Sender: FDA-Public Use
  Company Number: 2009186416

PATIENT
  Age: 55 Year

DRUGS (2)
  1. FRAGMIN [Suspect]
     Dosage: 1X1/DAY, SUBCUTANEOUS
     Route: 058
     Dates: start: 20071009
  2. NEUPOGEN [Concomitant]

REACTIONS (1)
  - PNEUMONIA [None]
